FAERS Safety Report 8391445-6 (Version None)
Quarter: 2012Q2

REPORT INFORMATION
  Report Type: 
  Country: None (occurrence: None)
  Receive Date: 20120529
  Receipt Date: 20120518
  Transmission Date: 20120825
  Serious: Yes (Other)
  Sender: FDA-Public Use
  Company Number: US-ASTRAZENECA-2012SE32128

PATIENT
  Age: 50 Year
  Sex: Female
  Weight: 129.3 kg

DRUGS (9)
  1. LANTUS [Concomitant]
     Indication: DIABETES MELLITUS
  2. ARIMIDEX [Suspect]
     Indication: BREAST CANCER FEMALE
     Route: 048
  3. LISINOPRIL [Suspect]
     Indication: BLOOD PRESSURE ABNORMAL
     Route: 048
  4. MULTI-VITAMINS [Concomitant]
  5. HUMALOG [Concomitant]
     Indication: DIABETES MELLITUS
  6. 2 LOW DOSE ASPIRIN [Concomitant]
     Dosage: 2 LOW DOSE
  7. MAGNESIUM [Concomitant]
  8. TORSEMIDE [Concomitant]
     Indication: DIURETIC THERAPY
  9. METOPROLOL TARTRATE [Suspect]
     Indication: BLOOD PRESSURE ABNORMAL
     Route: 048

REACTIONS (15)
  - THINKING ABNORMAL [None]
  - HEADACHE [None]
  - DRUG INEFFECTIVE [None]
  - BLISTER [None]
  - HALLUCINATION, VISUAL [None]
  - MALIGNANT HYPERTENSION [None]
  - DIZZINESS POSTURAL [None]
  - VISION BLURRED [None]
  - BLOOD GLUCOSE INCREASED [None]
  - MALAISE [None]
  - NERVOUSNESS [None]
  - DISORIENTATION [None]
  - CHROMATOPSIA [None]
  - VISUAL IMPAIRMENT [None]
  - ASTHENIA [None]
